FAERS Safety Report 7809688-6 (Version None)
Quarter: 2011Q4

REPORT INFORMATION
  Report Type: 
  Country: None (occurrence: None)
  Receive Date: 20111012
  Receipt Date: 20111007
  Transmission Date: 20120403
  Serious: Yes (Hospitalization, Other)
  Sender: FDA-Public Use
  Company Number: CA-GLAXOSMITHKLINE-A0948045A

PATIENT
  Sex: Female

DRUGS (6)
  1. IMOVANE [Concomitant]
  2. TYKERB [Suspect]
     Indication: BREAST CANCER METASTATIC
     Dosage: 1250MG PER DAY
     Route: 048
     Dates: start: 20110817
  3. EFFEXOR [Concomitant]
  4. XELODA [Concomitant]
  5. IBUPROFEN [Concomitant]
  6. TYLENOL W/ CODEINE NO. 3 [Concomitant]

REACTIONS (2)
  - NEOPLASM MALIGNANT [None]
  - MALAISE [None]
